FAERS Safety Report 7325452-9 (Version None)
Quarter: 2011Q1

REPORT INFORMATION
  Report Type: 
  Country: None (occurrence: None)
  Receive Date: 20110218
  Receipt Date: 20110214
  Transmission Date: 20110831
  Serious: Yes (Death)
  Sender: FDA-Public Use
  Company Number: CAP11000039

PATIENT
  Age: 82 Year
  Sex: Female

DRUGS (3)
  1. ACTONEL [Suspect]
     Indication: OSTEOPOROSIS
     Dosage: 35 MG ONCE WEEKLY, ORAL
     Route: 048
     Dates: start: 20050511, end: 20091201
  2. CALCIUM (CALCIUM) [Concomitant]
  3. VITAMIN D /00318501/ (COLECALCIFEROL) [Concomitant]

REACTIONS (1)
  - GASTRIC CANCER [None]
